FAERS Safety Report 9333685 (Version 1)
Quarter: 2013Q2

REPORT INFORMATION
  Report Type: Spontaneous
  Country: US (occurrence: US)
  Receive Date: 20130606
  Receipt Date: 20130606
  Transmission Date: 20140414
  Serious: No
  Sender: FDA-Public Use
  Company Number: US-AMGEN-USASP2012080573

PATIENT
  Age: 75 Year
  Sex: Female
  Weight: 65.31 kg

DRUGS (2)
  1. PROLIA [Suspect]
     Indication: OSTEOPOROSIS POSTMENOPAUSAL
     Dosage: 60 MG, Q6MO
     Route: 058
     Dates: start: 20111130
  2. PROLIA [Suspect]
     Dosage: 60 MG, Q6MO
     Route: 058
     Dates: start: 20120607

REACTIONS (3)
  - Urinary tract infection [Recovered/Resolved]
  - Escherichia urinary tract infection [Recovered/Resolved]
  - Pollakiuria [Unknown]
